FAERS Safety Report 7686939-2 (Version None)
Quarter: 2011Q3

REPORT INFORMATION
  Report Type: 
  Country: None (occurrence: None)
  Receive Date: 20110816
  Receipt Date: 20110812
  Transmission Date: 20111222
  Serious: Yes (Other)
  Sender: FDA-Public Use
  Company Number: DE-ABBOTT-11P-062-0846173-00

PATIENT
  Age: 61 Year
  Sex: Female

DRUGS (1)
  1. HUMIRA [Suspect]
     Indication: RHEUMATOID ARTHRITIS
     Dates: start: 20070301

REACTIONS (17)
  - RASH [None]
  - MYALGIA [None]
  - ABDOMINAL PAIN [None]
  - BONE PAIN [None]
  - DRY MOUTH [None]
  - FUNGAL INFECTION [None]
  - CONTUSION [None]
  - HYPERHIDROSIS [None]
  - IMPAIRED HEALING [None]
  - SINUSITIS [None]
  - INFLAMMATION [None]
  - PAPILLOMA VIRAL INFECTION [None]
  - DRY EYE [None]
  - PYREXIA [None]
  - TOOTH INFECTION [None]
  - SLEEP DISORDER [None]
  - CHOLECYSTITIS [None]
